FAERS Safety Report 7380161-5 (Version None)
Quarter: 2011Q1

REPORT INFORMATION
  Report Type: 
  Country: None (occurrence: None)
  Receive Date: 20110329
  Receipt Date: 20100921
  Transmission Date: 20110831
  Serious: No
  Sender: FDA-Public Use
  Company Number: US-MYLANLABS-2010S1017333

PATIENT
  Age: 65 Year
  Sex: Female
  Weight: 63.5 kg

DRUGS (4)
  1. ESTRADIOL [Suspect]
     Indication: HORMONE REPLACEMENT THERAPY
     Dosage: CHANGED Q.W.
     Route: 062
     Dates: start: 20091201, end: 20100201
  2. ESTRADIOL [Suspect]
     Dosage: CHANGED Q.W.
     Route: 062
     Dates: start: 20100501, end: 20100913
  3. ULTRAM [Concomitant]
     Indication: FIBROMYALGIA
     Dates: start: 19900101
  4. SYNTHROID [Concomitant]
     Indication: HYPOTHYROIDISM
     Dates: start: 20090501

REACTIONS (3)
  - HOT FLUSH [None]
  - DRUG EFFECT DECREASED [None]
  - DRUG LEVEL BELOW THERAPEUTIC [None]
